FAERS Safety Report 25282941 (Version 4)
Quarter: 2025Q2

REPORT INFORMATION
  Report Type: Spontaneous
  Country: US (occurrence: US)
  Receive Date: 20250508
  Receipt Date: 20250627
  Transmission Date: 20250717
  Serious: Yes (Other)
  Sender: PFIZER
  Company Number: US-PFIZER INC-202500093646

PATIENT
  Age: 63 Year
  Sex: Female

DRUGS (2)
  1. ESTRING [Suspect]
     Active Substance: ESTRADIOL
     Indication: Atrophic vulvovaginitis
     Dates: start: 20250423, end: 20250501
  2. ESTRING [Suspect]
     Active Substance: ESTRADIOL
     Indication: Vulvovaginal dryness

REACTIONS (5)
  - Vaginal discharge [Unknown]
  - Hyperhidrosis [Unknown]
  - Hot flush [Unknown]
  - Fear [Unknown]
  - Pelvic discomfort [Unknown]

NARRATIVE: CASE EVENT DATE: 20250424
